FAERS Safety Report 25104469 (Version 1)
Quarter: 2025Q1

REPORT INFORMATION
  Report Type: Other
  Country: SA (occurrence: SA)
  Receive Date: 20250321
  Receipt Date: 20250321
  Transmission Date: 20250408
  Serious: Yes (Hospitalization)
  Sender: EMD SERONO INC
  Company Number: SA-Merck Healthcare KGaA-2025012913

PATIENT
  Age: 15 Year
  Sex: Male

DRUGS (3)
  1. SOMATROPIN [Suspect]
     Active Substance: SOMATROPIN
     Indication: Growth hormone deficiency
  2. CEFIXIME [Suspect]
     Active Substance: CEFIXIME
     Indication: Upper respiratory tract infection
  3. METRONIDAZOLE [Suspect]
     Active Substance: METRONIDAZOLE
     Indication: Upper respiratory tract infection

REACTIONS (1)
  - Acute kidney injury [Recovered/Resolved]
